FAERS Safety Report 25961790 (Version 1)
Quarter: 2025Q4

REPORT INFORMATION
  Report Type: Spontaneous
  Country: EU (occurrence: EU)
  Receive Date: 20251027
  Receipt Date: 20251027
  Transmission Date: 20260118
  Serious: Yes (Death, Hospitalization)
  Sender: ZYDUS PHARM
  Company Number: EU-MLMSERVICE-20251008-PI670368-00217-1

PATIENT

DRUGS (1)
  1. METFORMIN [Suspect]
     Active Substance: METFORMIN HYDROCHLORIDE
     Indication: Type 2 diabetes mellitus
     Dosage: UNK
     Route: 065

REACTIONS (3)
  - Metabolic disorder [Fatal]
  - Overdose [Fatal]
  - Toxicity to various agents [Fatal]
